FAERS Safety Report 15346220 (Version 1)
Quarter: 2018Q3

REPORT INFORMATION
  Report Type: Other
  Country: JP (occurrence: JP)
  Receive Date: 20180904
  Receipt Date: 20180904
  Transmission Date: 20181010
  Serious: Yes (Death, Hospitalization, Other)
  Sender: FDA-Public Use
  Company Number: JP-ACTELION-A-CH2018-178011

PATIENT
  Age: 71 Year
  Sex: Female

DRUGS (3)
  1. BOSENTAN. [Suspect]
     Active Substance: BOSENTAN
     Indication: PULMONARY HYPERTENSION
     Dosage: 125 MG, QD
     Route: 048
  2. BOSENTAN. [Suspect]
     Active Substance: BOSENTAN
     Dosage: 250 MG, QD
     Route: 048
  3. BERAPROST SODIUM [Concomitant]
     Active Substance: BERAPROST SODIUM

REACTIONS (11)
  - Concomitant disease progression [Fatal]
  - Brain natriuretic peptide increased [Fatal]
  - Hypoxia [Unknown]
  - Systemic lupus erythematosus [Unknown]
  - Pulmonary arterial pressure increased [Recovering/Resolving]
  - Vasculitis [Unknown]
  - Pneumonia bacterial [Unknown]
  - Cardiac failure [Fatal]
  - Malaise [Unknown]
  - Diarrhoea [Unknown]
  - Cerebral haemorrhage [Unknown]
